FAERS Safety Report 18920008 (Version 2)
Quarter: 2021Q4

REPORT INFORMATION
  Report Type: Other
  Country: GB (occurrence: GB)
  Receive Date: 20210222
  Receipt Date: 20211026
  Transmission Date: 20220303
  Serious: Yes (Other)
  Sender: FDA-Public Use
  Company Number: GB-MACLEODS PHARMA UK LTD-MAC2021030192

PATIENT

DRUGS (14)
  1. LEVOFLOXACIN [Suspect]
     Active Substance: LEVOFLOXACIN
     Indication: Helicobacter infection
     Dosage: 250 MILLIGRAM, BID
     Route: 048
     Dates: start: 20210209, end: 20210210
  2. LEVOFLOXACIN [Suspect]
     Active Substance: LEVOFLOXACIN
     Indication: Ill-defined disorder
  3. ACETAMINOPHEN [Suspect]
     Active Substance: ACETAMINOPHEN
     Indication: Tendon pain
     Dosage: UNK
     Route: 065
  4. ACETAMINOPHEN [Suspect]
     Active Substance: ACETAMINOPHEN
     Indication: Tendon pain
  5. IBUPROFEN [Suspect]
     Active Substance: IBUPROFEN
     Indication: Tendon pain
     Dosage: UNK
     Route: 065
  6. IBUPROFEN [Suspect]
     Active Substance: IBUPROFEN
     Indication: Tendon pain
  7. Accord healthcare Clarithromycin [Concomitant]
     Indication: Ill-defined disorder
     Dosage: UNK
     Route: 065
  8. Accord-uk Metronidazole [Concomitant]
     Indication: Ill-defined disorder
     Dosage: UNK
     Route: 065
  9. OMEPRAZOLE [Concomitant]
     Active Substance: OMEPRAZOLE
     Indication: Ill-defined disorder
     Dosage: UNK
     Route: 065
  10. VITAMIN D3 [Concomitant]
     Active Substance: CHOLECALCIFEROL
     Indication: Ill-defined disorder
     Dosage: UNK
     Route: 065
  11. ZINC [Concomitant]
     Active Substance: ZINC
     Indication: Ill-defined disorder
     Dosage: UNK
     Route: 065
  12. ZINC [Concomitant]
     Active Substance: ZINC
     Dosage: UNK
     Route: 065
  13. ZINC [Concomitant]
     Active Substance: ZINC
     Dosage: UNK
     Route: 065
  14. ZINC [Concomitant]
     Active Substance: ZINC
     Dosage: UNK
     Route: 065

REACTIONS (6)
  - Tendon pain [Not Recovered/Not Resolved]
  - Tendon pain [Not Recovered/Not Resolved]
  - Adverse drug reaction [Recovering/Resolving]
  - Blister [Recovering/Resolving]
  - Palpitations [Not Recovered/Not Resolved]
  - Drug ineffective [Unknown]

NARRATIVE: CASE EVENT DATE: 20210210
